FAERS Safety Report 26126882 (Version 1)
Quarter: 2025Q4

REPORT INFORMATION
  Report Type: Spontaneous
  Country: RS (occurrence: RS)
  Receive Date: 20251205
  Receipt Date: 20251205
  Transmission Date: 20260117
  Serious: Yes (Other)
  Sender: NOVO NORDISK
  Company Number: RS-NOVOPROD-1573718

PATIENT
  Age: 45 Year
  Sex: Female

DRUGS (1)
  1. WEGOVY [Suspect]
     Active Substance: SEMAGLUTIDE
     Indication: Obesity
     Dosage: UNK

REACTIONS (2)
  - Intracranial pressure increased [Recovered/Resolved]
  - Blindness transient [Recovered/Resolved]
